FAERS Safety Report 6451848-3 (Version None)
Quarter: 2009Q4

REPORT INFORMATION
  Report Type: 
  Country: None (occurrence: None)
  Receive Date: 20091123
  Receipt Date: 20091109
  Transmission Date: 20100525
  Serious: Yes (Hospitalization, Other)
  Sender: FDA-Public Use
  Company Number: US-ELI_LILLY_AND_COMPANY-US200911002854

PATIENT
  Sex: Female

DRUGS (9)
  1. CYMBALTA [Suspect]
     Indication: DEPRESSION
     Dosage: 1 D/F, DAILY (1/D)
     Dates: start: 20090124, end: 20090601
  2. CYMBALTA [Suspect]
     Dosage: 1 D/F, DAILY (1/D)
  3. CYMBALTA [Suspect]
     Dosage: 1 D/F, UNK
  4. ELAVIL [Concomitant]
     Dosage: 1 D/F, UNK
  5. XANAX [Concomitant]
     Indication: DEPRESSION
     Dosage: 1 D/F, UNK
  6. MAGNESIUM [Concomitant]
     Dosage: 1 D/F, UNK
  7. DIURETICS [Concomitant]
     Dosage: 1 D/F, UNK
  8. DILAUDID [Concomitant]
     Dosage: 1 D/F, UNK
  9. KADIAN [Concomitant]
     Dosage: 1 D/F, UNK

REACTIONS (7)
  - AFFECTIVE DISORDER [None]
  - COLOSTOMY [None]
  - LOSS OF CONSCIOUSNESS [None]
  - MOUTH INJURY [None]
  - NIGHTMARE [None]
  - RENAL FAILURE [None]
  - SCAR [None]
